FAERS Safety Report 26114037 (Version 1)
Quarter: 2025Q4

REPORT INFORMATION
  Report Type: Spontaneous
  Country: JP (occurrence: JP)
  Receive Date: 20251202
  Receipt Date: 20251202
  Transmission Date: 20260117
  Serious: Yes (Hospitalization, Other)
  Sender: BRISTOL-MYERS SQUIBB COMPANY
  Company Number: JP-ONO-2025JP021391

PATIENT
  Age: 78 Year
  Sex: Male

DRUGS (1)
  1. OPDIVO [Suspect]
     Active Substance: NIVOLUMAB
     Indication: Oesophageal carcinoma
     Dosage: UNK
     Route: 041

REACTIONS (6)
  - Pemphigoid [Unknown]
  - Toxic epidermal necrolysis [Unknown]
  - Immune-mediated thyroiditis [Unknown]
  - Fulminant type 1 diabetes mellitus [Unknown]
  - Stomatitis [Unknown]
  - Renal impairment [Unknown]
